FAERS Safety Report 4386975-8 (Version None)
Quarter: 2004Q2

REPORT INFORMATION
  Report Type: 
  Country: None (occurrence: None)
  Receive Date: 20040630
  Receipt Date: 20040623
  Transmission Date: 20050107
  Serious: Yes (Other)
  Sender: FDA-Public Use
  Company Number: 200416399GDDC

PATIENT
  Age: 54 Year
  Sex: Female
  Weight: 64 kg

DRUGS (5)
  1. LEFLUNOMIDE [Suspect]
     Indication: RHEUMATOID ARTHRITIS
     Route: 048
     Dates: start: 20040521, end: 20040621
  2. METHOTREXATE [Suspect]
     Indication: RHEUMATOID ARTHRITIS
     Route: 048
     Dates: start: 20030923, end: 20040621
  3. FOLIC ACID [Concomitant]
     Route: 048
     Dates: start: 20030101
  4. PREDNISOLONE [Concomitant]
     Route: 048
     Dates: start: 20040220
  5. MELOXICAM [Concomitant]
     Dosage: DOSE: UNK

REACTIONS (2)
  - ALANINE AMINOTRANSFERASE INCREASED [None]
  - MEDICATION ERROR [None]
